FAERS Safety Report 22371870 (Version 1)
Quarter: 2023Q2

REPORT INFORMATION
  Report Type: Spontaneous
  Country: US (occurrence: US)
  Receive Date: 20230526
  Receipt Date: 20230526
  Transmission Date: 20230721
  Serious: No
  Sender: FDA-Public Use
  Company Number: US-PFIZER INC-202300200681

PATIENT
  Age: 77 Year
  Sex: Male
  Weight: 77.11 kg

DRUGS (2)
  1. VYNDAMAX [Suspect]
     Active Substance: TAFAMIDIS
     Indication: Amyloidosis
     Dosage: UNK
  2. RYTARY [Concomitant]
     Active Substance: CARBIDOPA\LEVODOPA
     Dosage: 3X/DAY, (RYTARY: 23.75 MILLIGRAMS/95 MILLIGRAMS)

REACTIONS (2)
  - Body height decreased [Unknown]
  - Off label use [Unknown]
